FAERS Safety Report 10067081 (Version 1)
Quarter: 2014Q2

REPORT INFORMATION
  Report Type: Report from Study
  Country: FR (occurrence: FR)
  Receive Date: 20140409
  Receipt Date: 20140409
  Transmission Date: 20141212
  Serious: Yes (Other)
  Sender: FDA-Public Use
  Company Number: FR-ROCHE-1378426

PATIENT
  Age: 67 Year
  Sex: Female

DRUGS (2)
  1. ZELBORAF [Suspect]
     Indication: NEOPLASM MALIGNANT
     Dosage: 4 TABLETS IN MORNING AND 4 TABLETS AT NIGHT.
     Route: 065
  2. ZELBORAF [Suspect]
     Dosage: 1 TABLETS IN MORNING AND 1 TABLETS AT NIGHT.
     Route: 065

REACTIONS (1)
  - Skin reaction [Unknown]
